FAERS Safety Report 13192307 (Version 1)
Quarter: 2017Q1

REPORT INFORMATION
  Report Type: Spontaneous
  Country: US (occurrence: US)
  Receive Date: 20170207
  Receipt Date: 20170207
  Transmission Date: 20170428
  Serious: Yes (Other)
  Sender: FDA-Public Use
  Company Number: US-ROCHE-1889419

PATIENT
  Sex: Female

DRUGS (1)
  1. AVASTIN [Suspect]
     Active Substance: BEVACIZUMAB
     Indication: OVARIAN CANCER
     Dosage: FOR 6 MONTHS
     Route: 065

REACTIONS (4)
  - Erythema [Unknown]
  - Bone pain [Unknown]
  - Serum sickness [Unknown]
  - Peripheral swelling [Unknown]
